FAERS Safety Report 17941470 (Version 2)
Quarter: 2020Q3

REPORT INFORMATION
  Report Type: Spontaneous
  Country: DE (occurrence: DE)
  Receive Date: 20200624
  Receipt Date: 20200703
  Transmission Date: 20201103
  Serious: Yes (Hospitalization)
  Sender: FDA-Public Use
  Company Number: NVSC2020DE176481

PATIENT
  Age: 11 Year
  Sex: Female

DRUGS (5)
  1. VITAMIN D [Concomitant]
     Active Substance: VITAMIN D NOS
     Indication: VITAMIN D DEFICIENCY
     Dosage: 20000 IU, QW
     Route: 048
     Dates: start: 201911
  2. ADALIMUMAB [Suspect]
     Active Substance: ADALIMUMAB
     Indication: CROHN^S DISEASE
     Dosage: 40 MG
     Route: 058
     Dates: start: 20191217, end: 20200414
  3. ADALIMUMAB [Suspect]
     Active Substance: ADALIMUMAB
     Dosage: UNK
     Route: 058
  4. ADALIMUMAB [Suspect]
     Active Substance: ADALIMUMAB
     Dosage: 40 MG
     Route: 058
     Dates: start: 20200501
  5. MODULEN IBD [Concomitant]
     Active Substance: CARBOHYDRATES\FATTY ACIDS\MINERALS\PROTEIN\VITAMINS
     Indication: PRODUCT USED FOR UNKNOWN INDICATION
     Dosage: UNK(1X500 ML/G)
     Route: 048

REACTIONS (7)
  - Rhinitis [Unknown]
  - Pyrexia [Recovered/Resolved]
  - Anal fistula [Unknown]
  - Anorectal swelling [Unknown]
  - Inflammatory marker increased [Unknown]
  - Induration [Unknown]
  - Anal abscess [Recovered/Resolved]

NARRATIVE: CASE EVENT DATE: 20200428
